FAERS Safety Report 4959461-1 (Version None)
Quarter: 2006Q1

REPORT INFORMATION
  Report Type: 
  Country: None (occurrence: None)
  Receive Date: 20060201
  Receipt Date: 20051123
  Transmission Date: 20060701
  Serious: No
  Sender: FDA-Public Use
  Company Number: 2005PV004810

PATIENT
  Age: 51 Year
  Sex: Male
  Weight: 113.3993 kg

DRUGS (7)
  1. BYETTA [Suspect]
     Indication: DIABETES MELLITUS NON-INSULIN-DEPENDENT
     Dosage: 5 MCG;BID;SC
     Route: 058
     Dates: start: 20051102
  2. COREG [Suspect]
     Dosage: SEE IMAGE
     Dates: start: 20051102
  3. METFORMIN [Concomitant]
  4. ACTOS [Concomitant]
  5. GLYBURIDE [Concomitant]
  6. LANTUS [Concomitant]
  7. NEXIUM [Concomitant]

REACTIONS (4)
  - BLOOD GLUCOSE DECREASED [None]
  - DECREASED APPETITE [None]
  - HEADACHE [None]
  - HYPOGLYCAEMIA UNAWARENESS [None]
